FAERS Safety Report 20487517 (Version 2)
Quarter: 2022Q1

REPORT INFORMATION
  Report Type: Spontaneous
  Country: US (occurrence: US)
  Receive Date: 20220218
  Receipt Date: 20220310
  Transmission Date: 20220424
  Serious: No
  Sender: FDA-Public Use
  Company Number: US-BEH-2022142320

PATIENT
  Age: 76 Year
  Sex: Female

DRUGS (3)
  1. HIZENTRA [Suspect]
     Active Substance: HUMAN IMMUNOGLOBULIN G
     Indication: Immunodeficiency common variable
     Dosage: 20 GRAM, QOW
     Route: 065
     Dates: start: 2012
  2. HIZENTRA [Suspect]
     Active Substance: HUMAN IMMUNOGLOBULIN G
     Dosage: 20 GRAM, QW
     Route: 065
     Dates: start: 20220211
  3. BETAHISTINE [Concomitant]
     Active Substance: BETAHISTINE

REACTIONS (7)
  - Infusion site erythema [Recovered/Resolved]
  - Recalled product administered [Recovered/Resolved]
  - Infusion site pruritus [Recovered/Resolved]
  - Recalled product administered [Recovered/Resolved]
  - Infusion site urticaria [Recovered/Resolved]
  - Recalled product administered [Recovered/Resolved]
  - Injection site pain [Recovered/Resolved]

NARRATIVE: CASE EVENT DATE: 20220211
